FAERS Safety Report 7468204-1 (Version None)
Quarter: 2011Q2

REPORT INFORMATION
  Report Type: 
  Country: None (occurrence: None)
  Receive Date: 20110509
  Receipt Date: 20110503
  Transmission Date: 20111010
  Serious: Yes (Other)
  Sender: FDA-Public Use
  Company Number: PHHY2011US19949

PATIENT
  Sex: Female

DRUGS (1)
  1. GLEEVEC [Suspect]
     Indication: CHRONIC MYELOID LEUKAEMIA
     Dosage: 400 MG, DAILY
     Route: 048
     Dates: start: 20100422, end: 20101027

REACTIONS (7)
  - PALPITATIONS [None]
  - ASTHENIA [None]
  - ARTHRALGIA [None]
  - HEADACHE [None]
  - FATIGUE [None]
  - LETHARGY [None]
  - TACHYCARDIA [None]
